FAERS Safety Report 8349618-4 (Version None)
Quarter: 2012Q2

REPORT INFORMATION
  Report Type: 
  Country: None (occurrence: None)
  Receive Date: 20120510
  Receipt Date: 20120504
  Transmission Date: 20120825
  Serious: Yes (Hospitalization)
  Sender: FDA-Public Use
  Company Number: IT-BAYER-2012-043925

PATIENT
  Age: 90 Year
  Sex: Female

DRUGS (5)
  1. ASPIRIN [Suspect]
     Indication: HYPERTENSIVE HEART DISEASE
     Dosage: 100 MG, QD
     Route: 048
     Dates: start: 20020419, end: 20120419
  2. SOTALOL HCL [Concomitant]
     Dosage: DAILY DOSE 2 DF
     Route: 048
  3. NORVASC [Concomitant]
     Indication: HYPERTENSIVE HEART DISEASE
     Dosage: DAILY DOSE 10 MG
     Route: 048
  4. LASIX [Concomitant]
     Dosage: DAILY DOSE 50 MG
     Route: 048
  5. VALPRESSION [Concomitant]
     Dosage: DAILY DOSE 320 MG
     Route: 048

REACTIONS (2)
  - ANAEMIA [None]
  - GASTRIC ULCER [None]
